FAERS Safety Report 5797112-7 (Version None)
Quarter: 2008Q3

REPORT INFORMATION
  Report Type: 
  Country: None (occurrence: None)
  Receive Date: 20080701
  Receipt Date: 20080620
  Transmission Date: 20090109
  Serious: Yes (Life-Threatening, Hospitalization)
  Sender: FDA-Public Use
  Company Number: BE-AMGEN-UK266727

PATIENT
  Sex: Male

DRUGS (14)
  1. PANITUMUMAB [Suspect]
     Indication: SQUAMOUS CELL CARCINOMA
     Route: 042
     Dates: start: 20080211
  2. DOCETAXEL [Concomitant]
  3. CISPLATIN [Concomitant]
  4. FLUOROURACIL [Concomitant]
  5. DAFALGAN [Concomitant]
     Dates: start: 20070206
  6. CORSODYL [Concomitant]
     Dates: start: 20070206
  7. IMODIUM [Concomitant]
     Dates: start: 20080219
  8. EMEND [Concomitant]
     Dates: start: 20080211, end: 20080212
  9. DEXAMETHASONE [Concomitant]
     Dates: start: 20080212, end: 20080214
  10. ZOFRAN [Concomitant]
     Dates: start: 20080211, end: 20080211
  11. SOLU-MEDROL [Concomitant]
     Dates: start: 20080211, end: 20080211
  12. MEDROL [Concomitant]
     Dates: start: 20080210, end: 20080212
  13. RANITIDINE HCL [Concomitant]
     Route: 042
     Dates: start: 20080223
  14. FRAXIPARIN [Concomitant]
     Route: 065

REACTIONS (4)
  - ANAEMIA [None]
  - DIARRHOEA [None]
  - FEBRILE NEUTROPENIA [None]
  - SEPSIS [None]
